FAERS Safety Report 7726388-1 (Version None)
Quarter: 2011Q3

REPORT INFORMATION
  Report Type: 
  Country: None (occurrence: None)
  Receive Date: 20110902
  Receipt Date: 20110830
  Transmission Date: 20111222
  Serious: Yes (Other)
  Sender: FDA-Public Use
  Company Number: US-SANOFI-AVENTIS-2011SA055947

PATIENT
  Sex: Male

DRUGS (2)
  1. PLAVIX [Suspect]
     Route: 048
  2. PLAVIX [Suspect]
     Indication: STENT PLACEMENT
     Route: 048

REACTIONS (1)
  - APPENDICITIS [None]
